FAERS Safety Report 23966139 (Version 1)
Quarter: 2024Q2

REPORT INFORMATION
  Report Type: Spontaneous
  Country: US (occurrence: US)
  Receive Date: 20240612
  Receipt Date: 20240612
  Transmission Date: 20240716
  Serious: No
  Sender: FDA-Public Use
  Company Number: US-AUROBINDO-AUR-APL-2023-054218

PATIENT

DRUGS (2)
  1. OLMESARTAN MEDOXOMIL [Suspect]
     Active Substance: OLMESARTAN MEDOXOMIL
     Indication: Blood pressure measurement
     Dosage: 20 MILLIGRAM
     Route: 065
  2. OLMESARTAN MEDOXOMIL [Suspect]
     Active Substance: OLMESARTAN MEDOXOMIL
     Dosage: 40 MILLIGRAM
     Route: 065

REACTIONS (2)
  - Drug ineffective [Unknown]
  - Product substitution issue [Unknown]
